FAERS Safety Report 12618454 (Version 1)
Quarter: 2016Q3

REPORT INFORMATION
  Report Type: Spontaneous
  Country: AT (occurrence: AT)
  Receive Date: 20160803
  Receipt Date: 20160803
  Transmission Date: 20161109
  Serious: Yes (Other)
  Sender: FDA-Public Use
  Company Number: AT-GLAXOSMITHKLINE-AT2016GSK111802

PATIENT
  Age: 66 Year
  Sex: Male
  Weight: 93 kg

DRUGS (9)
  1. THROMBO ASS [Suspect]
     Active Substance: ASPIRIN
     Indication: PRODUCT USED FOR UNKNOWN INDICATION
  2. ACEMIN [Suspect]
     Active Substance: LISINOPRIL
     Indication: PRODUCT USED FOR UNKNOWN INDICATION
  3. HEPARIN [Suspect]
     Active Substance: HEPARIN SODIUM
     Indication: PRODUCT USED FOR UNKNOWN INDICATION
  4. ZOLPIDEM [Suspect]
     Active Substance: ZOLPIDEM\ZOLPIDEM TARTRATE
     Indication: PRODUCT USED FOR UNKNOWN INDICATION
  5. XEFO [Suspect]
     Active Substance: LORNOXICAM
     Indication: PRODUCT USED FOR UNKNOWN INDICATION
  6. VOLTAREN [Suspect]
     Active Substance: DICLOFENAC SODIUM
     Indication: INTERVERTEBRAL DISC OPERATION
     Route: 065
  7. ALNA RETARD [Suspect]
     Active Substance: TAMSULOSIN HYDROCHLORIDE
     Indication: PRODUCT USED FOR UNKNOWN INDICATION
  8. ELIQUIS [Suspect]
     Active Substance: APIXABAN
     Dosage: 5 MG, BID
     Dates: start: 201602, end: 201607
  9. SIMVASTATIN. [Suspect]
     Active Substance: SIMVASTATIN
     Indication: PRODUCT USED FOR UNKNOWN INDICATION
     Dosage: 20 MG, UNK

REACTIONS (5)
  - Dizziness [Unknown]
  - Headache [Unknown]
  - Cerebrovascular accident [Unknown]
  - Ischaemia [Unknown]
  - Haemorrhage [Unknown]

NARRATIVE: CASE EVENT DATE: 20160223
